FAERS Safety Report 20501150 (Version 1)
Quarter: 2022Q1

REPORT INFORMATION
  Report Type: Spontaneous
  Country: US (occurrence: None)
  Receive Date: 20220218
  Receipt Date: 20220218
  Transmission Date: 20220423
  Serious: No
  Sender: FDA-Public Use
  Company Number: None

PATIENT
  Age: 38 Year
  Sex: Male
  Weight: 84.15 kg

DRUGS (1)
  1. DEXTROAMPHETAMINE SULFATE [Suspect]
     Active Substance: DEXTROAMPHETAMINE SULFATE
     Indication: Attention deficit hyperactivity disorder
     Dosage: OTHER QUANTITY : 1 TABLET(S);?FREQUENCY : TWICE A DAY;?
     Route: 048

REACTIONS (9)
  - Drug ineffective [None]
  - Product substitution issue [None]
  - Therapeutic product effect variable [None]
  - Nausea [None]
  - Heart rate increased [None]
  - Blood pressure increased [None]
  - Therapy non-responder [None]
  - Impaired work ability [None]
  - Product complaint [None]

NARRATIVE: CASE EVENT DATE: 20211217
